FAERS Safety Report 4474638-X (Version None)
Quarter: 2004Q4

REPORT INFORMATION
  Report Type: 
  Country: None (occurrence: None)
  Receive Date: 20041012
  Receipt Date: 20040930
  Transmission Date: 20050328
  Serious: Yes (Hospitalization)
  Sender: FDA-Public Use
  Company Number: 2004203561JP

PATIENT
  Age: 9 Year
  Sex: Male
  Weight: 38 kg

DRUGS (5)
  1. LUVOX [Suspect]
     Indication: ANXIETY
     Dosage: 75 MG/DAY, ORAL
     Route: 048
     Dates: start: 20031021, end: 20040203
  2. SOLANAX (ALPRAZOLAM) TABLET [Suspect]
     Indication: ANXIETY
     Dosage: 0.8 MG/DAY, ORAL
     Route: 048
     Dates: start: 20031018, end: 20040203
  3. SERENACE (HALOPERIDOL) [Suspect]
     Indication: ABNORMAL BEHAVIOUR
     Dosage: 3 MG/DAY, ORAL
     Route: 048
     Dates: start: 20031018, end: 20040203
  4. NEULEPTIL (PERICIAZINE) [Suspect]
     Indication: ABNORMAL BEHAVIOUR
     Dosage: 5 MG/DAY, ORAL
     Route: 048
     Dates: start: 20040127, end: 20040203
  5. TEGRETOL [Suspect]
     Indication: EXCITABILITY
     Dosage: 200 MG/DAY, ORAL
     Route: 048
     Dates: start: 20040106, end: 20040201

REACTIONS (12)
  - ALANINE AMINOTRANSFERASE INCREASED [None]
  - ASPARTATE AMINOTRANSFERASE INCREASED [None]
  - BLOOD ALKALINE PHOSPHATASE INCREASED [None]
  - BLOOD LACTATE DEHYDROGENASE INCREASED [None]
  - CROSS SENSITIVITY REACTION [None]
  - GAMMA-GLUTAMYLTRANSFERASE INCREASED [None]
  - HEPATIC FUNCTION ABNORMAL [None]
  - HYPERSENSITIVITY [None]
  - LYMPHOCYTE COUNT INCREASED [None]
  - LYMPHOCYTE MORPHOLOGY ABNORMAL [None]
  - LYMPHOCYTE STIMULATION TEST POSITIVE [None]
  - PIGMENTATION DISORDER [None]
